FAERS Safety Report 7795667-4 (Version None)
Quarter: 2011Q4

REPORT INFORMATION
  Report Type: 
  Country: None (occurrence: None)
  Receive Date: 20111004
  Receipt Date: 20110927
  Transmission Date: 20120403
  Serious: Yes (Hospitalization)
  Sender: FDA-Public Use
  Company Number: JP-GLAXOSMITHKLINE-B0751653A

PATIENT
  Age: 69 Year
  Sex: Female

DRUGS (6)
  1. SILECE [Concomitant]
     Route: 065
  2. LAMICTAL [Suspect]
     Indication: BIPOLAR DISORDER
     Route: 048
  3. ZYPREXA [Concomitant]
     Route: 048
  4. SEROQUEL [Concomitant]
     Route: 048
  5. CLONAZEPAM [Concomitant]
     Route: 048
  6. AMOBAN [Concomitant]
     Route: 048

REACTIONS (2)
  - DIET REFUSAL [None]
  - PERSECUTORY DELUSION [None]
